FAERS Safety Report 16996614 (Version 1)
Quarter: 2019Q4

REPORT INFORMATION
  Report Type: Spontaneous
  Country: US (occurrence: US)
  Receive Date: 20191105
  Receipt Date: 20191105
  Transmission Date: 20200122
  Serious: No
  Sender: FDA-Public Use
  Company Number: US-SA-2019SA305063

PATIENT
  Age: 21 Year
  Sex: Female

DRUGS (4)
  1. MONTELUKAST [Concomitant]
     Active Substance: MONTELUKAST SODIUM
  2. CETIRIZINE [Concomitant]
     Active Substance: CETIRIZINE HYDROCHLORIDE
  3. DUPIXENT [Suspect]
     Active Substance: DUPILUMAB
     Indication: DERMATITIS ATOPIC
     Dosage: 300 MG
     Route: 058
     Dates: start: 20190822
  4. LESSINA [Concomitant]
     Active Substance: ETHINYL ESTRADIOL\LEVONORGESTREL

REACTIONS (3)
  - Eye irritation [Not Recovered/Not Resolved]
  - Swelling of eyelid [Not Recovered/Not Resolved]
  - Erythema [Not Recovered/Not Resolved]
